FAERS Safety Report 8351528-3 (Version None)
Quarter: 2012Q2

REPORT INFORMATION
  Report Type: 
  Country: None (occurrence: None)
  Receive Date: 20120511
  Receipt Date: 20120504
  Transmission Date: 20120825
  Serious: Yes (Hospitalization, Disabling)
  Sender: FDA-Public Use
  Company Number: FR-AMGEN-FRASP2012029392

PATIENT
  Age: 48 Year
  Sex: Female

DRUGS (9)
  1. ALISPORIVIR [Suspect]
     Indication: HEPATITIS C
     Dosage: BLINDED
     Route: 048
     Dates: start: 20090203, end: 20091105
  2. NEUPOGEN [Suspect]
     Indication: NEUTROPENIA
     Dosage: UNK
     Dates: start: 20090827
  3. NEORECORMON [Concomitant]
     Dosage: UNK
     Dates: start: 20090520
  4. RIBAVIRIN [Suspect]
     Indication: HEPATITIS C
     Dosage: 600 MG, UNK
     Route: 048
     Dates: start: 20090203
  5. PEGINTERFERON ALFA-2A [Suspect]
     Indication: HEPATITIS C
     Dosage: 180 MUG, QWK
     Route: 058
     Dates: start: 20090203
  6. RAMIPRIL [Suspect]
     Indication: HYPERTENSION
     Dosage: 10 MG, QD
     Dates: start: 20090827
  7. HUMALOG [Concomitant]
     Indication: HYPERTENSION
     Dosage: 5 MG, UNK
     Dates: start: 20051014
  8. AMLODIPINE BESYLATE [Suspect]
     Indication: HYPERTENSION
     Dosage: 5 MG, QD
     Dates: start: 20090811
  9. ZOLPIDEM TARTRATE [Concomitant]
     Indication: NEUTROPENIA
     Dosage: UNK
     Dates: start: 20091013

REACTIONS (1)
  - PANCREATITIS ACUTE [None]
